FAERS Safety Report 15096966 (Version 2)
Quarter: 2018Q3

REPORT INFORMATION
  Report Type: Report from Study
  Country: US (occurrence: US)
  Receive Date: 20180702
  Receipt Date: 20180731
  Transmission Date: 20181010
  Serious: Yes (Other)
  Sender: FDA-Public Use
  Company Number: US-PFIZER INC-2018083150

PATIENT
  Age: 85 Year
  Sex: Male

DRUGS (4)
  1. SUTENT [Suspect]
     Active Substance: SUNITINIB MALATE
     Dosage: 37.5 MG, CYCLIC (2 WEEKS ON, 1 WEEKS OFF)
     Route: 048
     Dates: end: 201803
  2. SUTENT [Suspect]
     Active Substance: SUNITINIB MALATE
     Dosage: 25 MG, CYCLIC (2 WEEKS ON, 1 WEEK OFF)
     Route: 048
     Dates: start: 201804
  3. SUTENT [Suspect]
     Active Substance: SUNITINIB MALATE
     Dosage: 25 MG, CYCLIC (2 WEEKS ON, 1 WEEK OFF)
     Route: 048
     Dates: start: 20180113
  4. SUTENT [Suspect]
     Active Substance: SUNITINIB MALATE
     Indication: RENAL CELL CARCINOMA
     Dosage: 37.5 MG, CYCLIC (2 WEEKS ON?2 WEEKS OFF)
     Route: 048
     Dates: start: 20180113

REACTIONS (19)
  - Fatigue [Unknown]
  - Back pain [Recovering/Resolving]
  - Muscular weakness [Not Recovered/Not Resolved]
  - Oedema peripheral [Unknown]
  - Cough [Unknown]
  - Upper respiratory tract infection [Recovered/Resolved]
  - Fall [Unknown]
  - Nausea [Not Recovered/Not Resolved]
  - Diarrhoea [Recovering/Resolving]
  - Respiratory tract congestion [Not Recovered/Not Resolved]
  - Chills [Not Recovered/Not Resolved]
  - Bronchitis [Unknown]
  - Hypertension [Unknown]
  - Anal incontinence [Unknown]
  - Weight decreased [Not Recovered/Not Resolved]
  - Pelvic pain [Recovering/Resolving]
  - Disorientation [Unknown]
  - Neuropathy peripheral [Unknown]
  - Productive cough [Not Recovered/Not Resolved]

NARRATIVE: CASE EVENT DATE: 2018
